FAERS Safety Report 8361131-7 (Version None)
Quarter: 2012Q2

REPORT INFORMATION
  Report Type: 
  Country: None (occurrence: None)
  Receive Date: 20120515
  Receipt Date: 20120503
  Transmission Date: 20120825
  Serious: Yes (Hospitalization)
  Sender: FDA-Public Use
  Company Number: CA-ROCHE-1066242

PATIENT
  Sex: Female
  Weight: 72.64 kg

DRUGS (18)
  1. AMLODIPINE BESYLATE [Suspect]
     Indication: PRODUCT USED FOR UNKNOWN INDICATION
  2. MORPHINE SULFATE [Suspect]
  3. MABTHERA [Suspect]
     Indication: RHEUMATOID ARTHRITIS
  4. MABTHERA [Suspect]
     Indication: SJOGREN'S SYNDROME
     Dosage: LAST DOSE: 20/APR/2012
     Route: 042
     Dates: start: 20070525
  5. METHYLPREDNISOLONE [Suspect]
     Indication: PREMEDICATION
     Route: 042
     Dates: start: 20120420, end: 20120420
  6. GLICLAZIDE [Suspect]
     Indication: DIABETES MELLITUS
  7. LEVOTHYROXINE SODIUM [Suspect]
     Indication: PRODUCT USED FOR UNKNOWN INDICATION
  8. MORPHINE SULFATE [Suspect]
     Indication: PRODUCT USED FOR UNKNOWN INDICATION
  9. ESOMEPRAZOLE MAGNESIUM [Suspect]
     Indication: PRODUCT USED FOR UNKNOWN INDICATION
  10. ANTIDEPRESSANT NOS [Suspect]
     Indication: DEPRESSION
  11. DIPHENHYDRAMINE HYDROCHLORIDE [Suspect]
     Indication: PREMEDICATION
     Route: 048
     Dates: start: 20120420, end: 20120420
  12. ACETAMINOPHEN [Suspect]
     Indication: PREMEDICATION
     Route: 048
     Dates: start: 20120420, end: 20120420
  13. LISINOPRIL [Suspect]
     Indication: HYPERTENSION
     Route: 048
  14. RAMIPRIL [Suspect]
     Indication: BLOOD PRESSURE
  15. PROCHLORPERAZINE [Suspect]
     Indication: VOMITING
  16. DIMENHYDRINATE [Suspect]
     Indication: PREMEDICATION
     Dates: start: 20120420, end: 20120420
  17. CANDESARTAN CILEXETIL [Suspect]
     Indication: HYPERTENSION
  18. PREDNISONE TAB [Suspect]
     Indication: PRODUCT USED FOR UNKNOWN INDICATION

REACTIONS (1)
  - GASTRIC DISORDER [None]
